FAERS Safety Report 9785808 (Version 1)
Quarter: 2013Q4

REPORT INFORMATION
  Report Type: Spontaneous
  Country: FR (occurrence: None)
  Receive Date: 20131223
  Receipt Date: 20131223
  Transmission Date: 20140711
  Serious: Yes (Hospitalization)
  Sender: FDA-Public Use
  Company Number: EUS-2012-00775

PATIENT
  Age: 27 Month
  Sex: Male
  Weight: 11.5 kg

DRUGS (1)
  1. ERWINASE [Suspect]
     Dosage: 5400 IU 2 IN 1 D
     Dates: start: 20120809, end: 20120905

REACTIONS (2)
  - Pyrexia [None]
  - Pain [None]
